FAERS Safety Report 11704851 (Version 1)
Quarter: 2015Q4

REPORT INFORMATION
  Report Type: Spontaneous
  Country: US (occurrence: US)
  Receive Date: 20151106
  Receipt Date: 20151106
  Transmission Date: 20160304
  Serious: Yes (Other)
  Sender: FDA-Public Use
  Company Number: US-LPDUSPRD-20150864

PATIENT

DRUGS (1)
  1. EPINEPHRINE INJECTION, USP (1071-25) [Suspect]
     Active Substance: EPINEPHRINE
     Dosage: UP TO 10MCG/KG/30 MIN INTERVAL
     Route: 051

REACTIONS (1)
  - Hypertension [Unknown]
